FAERS Safety Report 6211279-8 (Version None)
Quarter: 2009Q2

REPORT INFORMATION
  Report Type: 
  Country: None (occurrence: None)
  Receive Date: 20090528
  Receipt Date: 20090514
  Transmission Date: 20091009
  Serious: Yes (Other)
  Sender: FDA-Public Use
  Company Number: FR-GDP-09405955

PATIENT
  Sex: Male

DRUGS (1)
  1. EPIDUO (ADAPALENE) (BENZOYL PEROXIDE) GEL 0.1%/2.5% [Suspect]
     Dosage: (TOPICAL)
     Route: 061

REACTIONS (4)
  - APRAXIA [None]
  - DERMATITIS BULLOUS [None]
  - ECZEMA [None]
  - EYELID OEDEMA [None]
